FAERS Safety Report 6195532-2 (Version None)
Quarter: 2009Q2

REPORT INFORMATION
  Report Type: 
  Country: None (occurrence: None)
  Receive Date: 20090519
  Receipt Date: 20090511
  Transmission Date: 20091009
  Serious: Yes (Other)
  Sender: FDA-Public Use
  Company Number: PHHY2009JP08107

PATIENT
  Sex: Female
  Weight: 40 kg

DRUGS (6)
  1. ICL670A ICL+DISTAB [Suspect]
     Indication: MYELODYSPLASTIC SYNDROME
     Dosage: 500 MG, QD
     Route: 048
     Dates: start: 20080802, end: 20081106
  2. ICL670A ICL+DISTAB [Suspect]
     Indication: IRON OVERLOAD
     Dosage: 1000MG/DAY
     Route: 048
     Dates: start: 20081107
  3. JUZENTAIHOTO [Concomitant]
     Dosage: 7.5 G/DAY
     Route: 048
     Dates: start: 20060206
  4. ACINON [Concomitant]
     Dosage: 150MG/DAY
     Route: 048
     Dates: start: 20060206
  5. URSO 250 [Concomitant]
     Dosage: 150 MG/DAY
     Route: 048
     Dates: start: 20081127
  6. SODIUM CHLORIDE [Concomitant]
     Dosage: 4.5 G/DAY
     Route: 048
     Dates: start: 20080819

REACTIONS (4)
  - BLOOD ALKALINE PHOSPHATASE INCREASED [None]
  - DRUG INEFFECTIVE [None]
  - HYPONATRAEMIA [None]
  - OSTEOPOROSIS [None]
